FAERS Safety Report 19284466 (Version 1)
Quarter: 2021Q2

REPORT INFORMATION
  Report Type: Spontaneous
  Country: US (occurrence: US)
  Receive Date: 20210521
  Receipt Date: 20210521
  Transmission Date: 20210717
  Serious: Yes (Death, Other)
  Sender: FDA-Public Use
  Company Number: US-VIIV HEALTHCARE LIMITED-US2021104477

PATIENT
  Age: 39 Year
  Sex: Male

DRUGS (2)
  1. TIVICAY [Suspect]
     Active Substance: DOLUTEGRAVIR SODIUM
     Indication: HIV INFECTION
     Dosage: 50 MG, QD 1 TABLET DAILY
     Route: 048
     Dates: start: 20190101
  2. TIVICAY [Suspect]
     Active Substance: DOLUTEGRAVIR SODIUM
     Dosage: UNK, 1D
     Route: 048
     Dates: start: 20210201

REACTIONS (6)
  - Death [Fatal]
  - Kaposi^s sarcoma [Unknown]
  - Stomatitis [Unknown]
  - Cardiac disorder [Unknown]
  - Renal disorder [Unknown]
  - Gastrointestinal disorder [Unknown]

NARRATIVE: CASE EVENT DATE: 20210514
